FAERS Safety Report 10243241 (Version 1)
Quarter: 2014Q2

REPORT INFORMATION
  Report Type: Spontaneous
  Country: US (occurrence: None)
  Receive Date: 20140616
  Receipt Date: 20140616
  Transmission Date: 20141212
  Serious: Yes (Hospitalization)
  Sender: FDA-Public Use
  Company Number: None

PATIENT
  Age: 80 Year
  Sex: Male
  Weight: 69 kg

DRUGS (20)
  1. DABIGATRAN [Suspect]
     Indication: ATRIAL FIBRILLATION
     Route: 048
     Dates: start: 20110811, end: 20140609
  2. DABIGATRAN [Suspect]
     Indication: ANTICOAGULANT THERAPY
     Route: 048
     Dates: start: 20110811, end: 20140609
  3. APAP [Concomitant]
  4. ALBUTEROL [Concomitant]
  5. ALBUTEROL/IPRATROPIUM NEBS [Concomitant]
  6. ARTIFICIAL SALIVA [Concomitant]
  7. BUDESONIDE/FORMOTEROL [Concomitant]
  8. VIT B12 [Concomitant]
  9. FERROUS SULFATE [Concomitant]
  10. FLUTICASONE [Concomitant]
  11. MIRTAZAPINE [Concomitant]
  12. OMEPRAZOLE [Concomitant]
  13. POLYETHYLENE GLYCOL [Concomitant]
  14. KCL [Concomitant]
  15. PROCHLORPERAZINE [Concomitant]
  16. TAMSULOSIN [Concomitant]
  17. TRAMADOL [Concomitant]
  18. FUROSEMIDE [Concomitant]
  19. METOLAZONE [Concomitant]
  20. BACITRACIN [Concomitant]

REACTIONS (6)
  - Fall [None]
  - Delirium [None]
  - Toxicity to various agents [None]
  - Subdural haematoma [None]
  - Neurological symptom [None]
  - Headache [None]
